FAERS Safety Report 11276211 (Version 4)
Quarter: 2016Q3

REPORT INFORMATION
  Report Type: Spontaneous
  Country: JP (occurrence: JP)
  Receive Date: 20150716
  Receipt Date: 20160713
  Transmission Date: 20161109
  Serious: Yes (Life-Threatening)
  Sender: FDA-Public Use
  Company Number: JP-PFIZER INC-2015232385

PATIENT
  Age: 5 Year
  Sex: Female
  Weight: 19 kg

DRUGS (3)
  1. OZEX [Concomitant]
     Active Substance: TOSUFLOXACIN TOSYLATE
     Indication: MYCOPLASMA INFECTION
     Dosage: 230 MG, DAILY
     Route: 048
     Dates: start: 20121231, end: 20130102
  2. ZOSYN [Suspect]
     Active Substance: PIPERACILLIN SODIUM\TAZOBACTAM SODIUM
     Indication: RENAL ABSCESS
  3. ZOSYN [Suspect]
     Active Substance: PIPERACILLIN SODIUM\TAZOBACTAM SODIUM
     Indication: ACUTE FOCAL BACTERIAL NEPHRITIS
     Dosage: 2.25 G, 3X/DAY
     Route: 041
     Dates: start: 20121218, end: 20130102

REACTIONS (2)
  - Histiocytosis haematophagic [Recovered/Resolved]
  - Disseminated intravascular coagulation [Recovered/Resolved]

NARRATIVE: CASE EVENT DATE: 20121230
